FAERS Safety Report 12244638 (Version 1)
Quarter: 2016Q2

REPORT INFORMATION
  Report Type: Spontaneous
  Country: US (occurrence: US)
  Receive Date: 20160407
  Receipt Date: 20160407
  Transmission Date: 20160815
  Serious: Yes (Hospitalization)
  Sender: FDA-Public Use
  Company Number: US-ALKEM-001554

PATIENT
  Age: 16 Year
  Sex: Male

DRUGS (2)
  1. ALPRAZOLAM. [Suspect]
     Active Substance: ALPRAZOLAM
     Dosage: RECEIVED FOUR TABLET AT SCHOOL
  2. QUETIAPINE/QUETIAPINE FUMARATE [Suspect]
     Active Substance: QUETIAPINE FUMARATE
     Dosage: STARTED WITH 100 MG THEN INCREASED TO 300 MG ONCE DAILY.

REACTIONS (4)
  - Somnolence [Unknown]
  - Loss of consciousness [Unknown]
  - Palpitations [Unknown]
  - Drug abuse [Unknown]
